FAERS Safety Report 22212822 (Version 2)
Quarter: 2025Q2

REPORT INFORMATION
  Report Type: Spontaneous
  Country: DE (occurrence: DE)
  Receive Date: 20230414
  Receipt Date: 20250612
  Transmission Date: 20250717
  Serious: Yes (Other)
  Sender: AMGEN
  Company Number: DE-ROCHE-3295648

PATIENT
  Age: 64 Year
  Sex: Male
  Weight: 82 kg

DRUGS (11)
  1. BEVACIZUMAB [Suspect]
     Active Substance: BEVACIZUMAB
     Indication: Hepatocellular carcinoma
     Route: 065
     Dates: start: 20220921, end: 20221123
  2. ATEZOLIZUMAB [Suspect]
     Active Substance: ATEZOLIZUMAB
     Indication: Hepatocellular carcinoma
     Dosage: 1200 MILLIGRAM, QMO
     Route: 042
     Dates: start: 20220921, end: 20221123
  3. METAMIZOLE [Concomitant]
     Active Substance: METAMIZOLE
  4. AMPHOTERICIN B [Concomitant]
     Active Substance: AMPHOTERICIN B
     Dates: start: 20230110
  5. PANTOZOL [Concomitant]
     Active Substance: PANTOPRAZOLE SODIUM
  6. INDACATEROL ACETATE\MOMETASONE FUROATE [Concomitant]
     Active Substance: INDACATEROL ACETATE\MOMETASONE FUROATE
  7. AMLODIPINE [Concomitant]
     Active Substance: AMLODIPINE BESYLATE
  8. LACTULOSE [Concomitant]
     Active Substance: LACTULOSE
  9. BISOPROLOL [Concomitant]
     Active Substance: BISOPROLOL
  10. BECLOMETHASONE [Concomitant]
     Active Substance: BECLOMETHASONE
  11. INDACATEROL ACETATE\MOMETASONE FUROATE [Concomitant]
     Active Substance: INDACATEROL ACETATE\MOMETASONE FUROATE
     Route: 065

REACTIONS (1)
  - Drug-induced liver injury [Recovering/Resolving]

NARRATIVE: CASE EVENT DATE: 20221102
